FAERS Safety Report 22355829 (Version 4)
Quarter: 2023Q2

REPORT INFORMATION
  Report Type: Spontaneous
  Country: US (occurrence: US)
  Receive Date: 20230523
  Receipt Date: 20230627
  Transmission Date: 20230722
  Serious: Yes (Disabling, Other)
  Sender: FDA-Public Use
  Company Number: US-MYLANLABS-2023M1052533

PATIENT
  Age: 28 Year
  Sex: Female
  Weight: 89.81 kg

DRUGS (5)
  1. XULANE [Suspect]
     Active Substance: ETHINYL ESTRADIOL\NORELGESTROMIN
     Indication: Contraception
     Dosage: UNK UNK, QW ((ONCE WEEKLY)
     Route: 062
     Dates: start: 2015, end: 2019
  2. XULANE [Suspect]
     Active Substance: ETHINYL ESTRADIOL\NORELGESTROMIN
     Dosage: UNK
     Route: 062
     Dates: start: 2016, end: 201708
  3. ADVIL [Concomitant]
     Active Substance: IBUPROFEN
     Dosage: UNK
     Route: 065
  4. TYLENOL [Concomitant]
     Active Substance: ACETAMINOPHEN
     Dosage: UNK
     Route: 065
  5. PROGESTERONE [Concomitant]
     Active Substance: PROGESTERONE
     Dosage: UNK, PILL
     Route: 065

REACTIONS (15)
  - Haemorrhage [Recovered/Resolved]
  - Syncope [Recovered/Resolved]
  - Blindness [Not Recovered/Not Resolved]
  - Swelling face [Not Recovered/Not Resolved]
  - Illness [Recovered/Resolved]
  - Mobility decreased [Not Recovered/Not Resolved]
  - Seizure [Unknown]
  - Brain death [Unknown]
  - Eye disorder [Unknown]
  - Dyspepsia [Unknown]
  - Dizziness [Recovered/Resolved]
  - Vomiting [Unknown]
  - Gastrointestinal disorder [Unknown]
  - Muscle twitching [Unknown]
  - Oropharyngeal pain [Unknown]

NARRATIVE: CASE EVENT DATE: 20161201
